FAERS Safety Report 8474981-3 (Version None)
Quarter: 2012Q2

REPORT INFORMATION
  Report Type: 
  Country: None (occurrence: None)
  Receive Date: 20120628
  Receipt Date: 20120626
  Transmission Date: 20120825
  Serious: Yes (Death, Hospitalization)
  Sender: FDA-Public Use
  Company Number: PHHY2012BR043968

PATIENT
  Sex: Male

DRUGS (2)
  1. ONBREZ [Suspect]
     Indication: LUNG DISORDER
     Dosage: ONCE DAILY
     Dates: start: 20120101
  2. SUSTRATE [Concomitant]
     Indication: CARDIAC DISORDER
     Dosage: 2 DF, DAILY

REACTIONS (3)
  - DYSPNOEA [None]
  - SWELLING [None]
  - DEATH [None]
